FAERS Safety Report 23813244 (Version 1)
Quarter: 2024Q2

REPORT INFORMATION
  Report Type: Spontaneous
  Country: IT (occurrence: IT)
  Receive Date: 20240503
  Receipt Date: 20240503
  Transmission Date: 20240716
  Serious: Yes (Hospitalization, Other)
  Sender: FDA-Public Use
  Company Number: None

PATIENT
  Age: 57 Year
  Sex: Female
  Weight: 50 kg

DRUGS (3)
  1. PACLITAXEL [Suspect]
     Active Substance: PACLITAXEL
     Indication: Invasive ductal breast carcinoma
     Dosage: (80 MG/M2 TOTAL DOSE 125 MG), TEVA
     Route: 042
     Dates: start: 20240321, end: 20240321
  2. DEXAMETHASONE SODIUM PHOSPHATE [Concomitant]
     Active Substance: DEXAMETHASONE PHOSPHATE\DEXAMETHASONE SODIUM PHOSPHATE
     Indication: Premedication
     Dosage: 1 TABLET IN THE EVENING AND 8.00 AM ON THE DAY OF THE FIRST CYCLE
     Route: 048
     Dates: start: 20240320, end: 20240321
  3. OXATOMIDE [Concomitant]
     Active Substance: OXATOMIDE
     Indication: Product used for unknown indication
     Dosage: 1 TABLET IN THE EVENING AND 8.00 AM ON THE DAY OF THE FIRST CYCLE
     Route: 048
     Dates: start: 20240320, end: 20240321

REACTIONS (4)
  - Hypotension [Recovered/Resolved]
  - Loss of consciousness [Recovered/Resolved]
  - Flushing [Recovered/Resolved]
  - Oxygen saturation decreased [Recovered/Resolved]

NARRATIVE: CASE EVENT DATE: 20240321
